FAERS Safety Report 6914345-4 (Version None)
Quarter: 2010Q3

REPORT INFORMATION
  Report Type: 
  Country: None (occurrence: None)
  Receive Date: 20100809
  Receipt Date: 20100729
  Transmission Date: 20110219
  Serious: Yes (Hospitalization)
  Sender: FDA-Public Use
  Company Number: IT-SANOFI-AVENTIS-2010SA044492

PATIENT
  Age: 90 Year
  Sex: Female

DRUGS (4)
  1. CLEXANE [Suspect]
     Route: 058
     Dates: start: 20100430, end: 20100519
  2. VANCOMYCIN [Suspect]
     Route: 042
     Dates: start: 20100430, end: 20100503
  3. CEFTAZIDIME [Concomitant]
     Route: 042
     Dates: start: 20100430, end: 20100503
  4. AMOXICILLIN AND CLAVULANATE POTASSIUM [Concomitant]
     Route: 042
     Dates: start: 20100504, end: 20100505

REACTIONS (1)
  - DERMATITIS EXFOLIATIVE [None]
